FAERS Safety Report 25411937 (Version 1)
Quarter: 2025Q2

REPORT INFORMATION
  Report Type: Spontaneous
  Country: CH (occurrence: CH)
  Receive Date: 20250609
  Receipt Date: 20250609
  Transmission Date: 20250716
  Serious: Yes (Other)
  Sender: RANBAXY
  Company Number: CH-SUN PHARMACEUTICAL INDUSTRIES INC-2025R1-510593

PATIENT
  Age: 88 Year
  Sex: Male

DRUGS (2)
  1. LENALIDOMIDE [Suspect]
     Active Substance: LENALIDOMIDE
     Indication: Chemotherapy
     Dosage: 15 MILLIGRAM, DAILY, TWO CYCLES
     Route: 065
  2. TAFASITAMAB [Suspect]
     Active Substance: TAFASITAMAB
     Indication: Chemotherapy
     Route: 065

REACTIONS (3)
  - COVID-19 [Unknown]
  - Rash [Unknown]
  - Therapy partial responder [Unknown]
